FAERS Safety Report 7832358-5 (Version None)
Quarter: 2011Q4

REPORT INFORMATION
  Report Type: 
  Country: None (occurrence: None)
  Receive Date: 20111022
  Receipt Date: 20111011
  Transmission Date: 20120403
  Serious: Yes (Hospitalization, Other)
  Sender: FDA-Public Use
  Company Number: US-BAYER-200937885NA

PATIENT
  Age: 36 Year
  Sex: Male
  Weight: 80.726 kg

DRUGS (22)
  1. PRILOSEC [Concomitant]
     Dosage: 20 MG, QD
     Route: 048
  2. PLATELETS [Concomitant]
     Dosage: 1 U, UNK
     Dates: start: 19990209
  3. RED BLOOD CELLS [Concomitant]
     Dosage: 2 U, UNK
     Dates: start: 19990209
  4. FRESH FROZEN PLASMA [Concomitant]
     Dosage: 2 U, UNK
     Dates: start: 19990209
  5. TRASYLOL [Suspect]
     Indication: AORTIC VALVE REPLACEMENT
     Dosage: 50ML HOUR DRIP
     Route: 041
     Dates: start: 19990209, end: 19990209
  6. EPINEPHRINE [Concomitant]
     Dosage: 1 MG, DRIP
     Dates: end: 19990211
  7. TOBRAMYCIN [Concomitant]
     Indication: LUNG INFECTION PSEUDOMONAL
     Dosage: UNK
     Dates: start: 19990217
  8. AMIODARONE HCL [Concomitant]
     Dosage: UNK
     Dates: start: 19990303
  9. DIGOXIN [Concomitant]
     Dosage: UNK
     Dates: start: 19990727
  10. VASOTEC [Concomitant]
     Dosage: 10 MG, UNK
     Dates: start: 20000407
  11. LANOXIN [Concomitant]
     Dosage: 0.125 MG, QD
     Route: 048
     Dates: start: 19990101
  12. PROTAMINE SULFATE [Concomitant]
     Dosage: 800 MG, UNK
     Route: 042
     Dates: start: 19990209
  13. NITROGLYCERIN [Concomitant]
  14. ACETYLSALICYLIC ACID SRT [Concomitant]
     Dosage: 81 MG, UNK
     Dates: start: 20000729
  15. VASOTEC [Concomitant]
     Dosage: 2.5 MG, QD
     Route: 048
     Dates: start: 19990101
  16. TRASYLOL [Suspect]
     Indication: CORONARY ARTERY BYPASS
     Dosage: LOADING DOSE OF 200ML
     Dates: start: 19990209, end: 19990209
  17. DOPAMINE HCL [Concomitant]
  18. PAXIL [Concomitant]
     Dosage: DAILY DOSE 20 MG
     Route: 048
  19. FORTAZ [Concomitant]
     Indication: LUNG INFECTION PSEUDOMONAL
     Dosage: UNK
     Dates: start: 19990217
  20. HEPARIN [Concomitant]
     Dosage: 30,000 UNITS PLUS 50,000 UNITS
     Route: 042
     Dates: start: 19990209
  21. ACE INHIBITOR NOS [Concomitant]
     Dosage: UNK
     Dates: start: 19990727
  22. COUMADIN [Concomitant]

REACTIONS (13)
  - MYOCARDIAL INFARCTION [None]
  - ANXIETY [None]
  - UNEVALUABLE EVENT [None]
  - FEAR [None]
  - RENAL FAILURE [None]
  - PAIN [None]
  - INJURY [None]
  - EMOTIONAL DISTRESS [None]
  - RENAL INJURY [None]
  - STRESS [None]
  - MULTI-ORGAN FAILURE [None]
  - RENAL IMPAIRMENT [None]
  - CEREBROVASCULAR ACCIDENT [None]
